FAERS Safety Report 4975302-0 (Version None)
Quarter: 2006Q2

REPORT INFORMATION
  Report Type: 
  Country: None (occurrence: None)
  Receive Date: 20060418
  Receipt Date: 20050926
  Transmission Date: 20061013
  Serious: Yes (Hospitalization, Other)
  Sender: FDA-Public Use
  Company Number: US-MERCK-0509USA03799

PATIENT
  Age: 64 Year
  Sex: Female
  Weight: 112 kg

DRUGS (6)
  1. VIOXX [Suspect]
     Indication: ARTHRITIS
     Route: 048
     Dates: start: 20000804, end: 20040904
  2. VIOXX [Suspect]
     Indication: ARTHRALGIA
     Route: 048
     Dates: start: 20000804, end: 20040904
  3. EXTRA STRENGTH TYLENOL [Concomitant]
     Route: 065
  4. ULTRAM [Concomitant]
     Indication: NEURALGIA
     Route: 065
  5. INSULIN, BIPHASIC ISOPHANE [INJECTION] [Concomitant]
     Route: 058
  6. INSULIN, BIPHASIC ISOPHANE [INJECTION] [Concomitant]
     Route: 058

REACTIONS (23)
  - AORTIC ANEURYSM [None]
  - ATRIAL SEPTAL DEFECT [None]
  - BACK PAIN [None]
  - BLUE TOE SYNDROME [None]
  - BRONCHITIS ACUTE [None]
  - DEHYDRATION [None]
  - DEPRESSION [None]
  - FALL [None]
  - HEADACHE [None]
  - HERPES ZOSTER [None]
  - INSULIN-REQUIRING TYPE II DIABETES MELLITUS [None]
  - LACUNAR INFARCTION [None]
  - NAUSEA [None]
  - NEURALGIA [None]
  - NEUROPATHY PERIPHERAL [None]
  - NOCTURIA [None]
  - OSTEOARTHRITIS [None]
  - RASH [None]
  - RENAL FAILURE ACUTE [None]
  - STRESS [None]
  - SYNCOPE [None]
  - THROMBOSIS [None]
  - VOMITING [None]
